FAERS Safety Report 4541323-5 (Version None)
Quarter: 2004Q4

REPORT INFORMATION
  Report Type: 
  Country: None (occurrence: None)
  Receive Date: 20041222
  Receipt Date: 20041213
  Transmission Date: 20050328
  Serious: Yes (Hospitalization)
  Sender: FDA-Public Use
  Company Number: 2004IM000994

PATIENT
  Age: 61 Year
  Sex: Male

DRUGS (4)
  1. ADVAFERON (A643_INTERFERON ALFACON-1) [Suspect]
     Indication: HEPATITIS C
     Dosage: 12 MU
     Dates: start: 20041002, end: 20040101
  2. ENALAPRIL MALEATE [Concomitant]
  3. NIZATIDINE [Concomitant]
  4. POLAPREZINC [Concomitant]

REACTIONS (7)
  - ALANINE AMINOTRANSFERASE INCREASED [None]
  - CEREBRAL HAEMORRHAGE [None]
  - DEPRESSED LEVEL OF CONSCIOUSNESS [None]
  - HEMIPLEGIA [None]
  - PLATELET COUNT ABNORMAL [None]
  - RESPIRATORY FAILURE [None]
  - THALAMUS HAEMORRHAGE [None]
